FAERS Safety Report 12099393 (Version 1)
Quarter: 2016Q1

REPORT INFORMATION
  Report Type: Spontaneous
  Country: US (occurrence: None)
  Receive Date: 20160219
  Receipt Date: 20160219
  Transmission Date: 20160526
  Serious: No
  Sender: FDA-Public Use
  Company Number: None

PATIENT
  Age: 66 Year
  Sex: Female

DRUGS (1)
  1. SUTENT [Suspect]
     Active Substance: SUNITINIB MALATE
     Indication: RENAL CANCER
     Dosage: 25MG QD X4 WEEKS, OFF 2 WEEKS PO
     Route: 048
     Dates: start: 20150923

REACTIONS (2)
  - Appetite disorder [None]
  - Diarrhoea [None]

NARRATIVE: CASE EVENT DATE: 20160217
